FAERS Safety Report 6469171-X (Version None)
Quarter: 2009Q4

REPORT INFORMATION
  Report Type: 
  Country: None (occurrence: None)
  Receive Date: 20091203
  Receipt Date: 20080813
  Transmission Date: 20100525
  Serious: Yes (Other)
  Sender: FDA-Public Use
  Company Number: US-ELI_LILLY_AND_COMPANY-US200704005477

PATIENT
  Sex: Female
  Weight: 53.515 kg

DRUGS (2)
  1. CYMBALTA [Suspect]
     Indication: ARTHRALGIA
     Dosage: 30 MG, DAILY (1/D)
     Route: 048
     Dates: start: 20060413
  2. CYMBALTA [Suspect]
     Dosage: 60 MG, DAILY (1/D)

REACTIONS (7)
  - ANGLE CLOSURE GLAUCOMA [None]
  - BREAST FIBROSIS [None]
  - CATARACT [None]
  - CHOROIDAL DETACHMENT [None]
  - EAR DISCOMFORT [None]
  - MIGRAINE [None]
  - UVEITIS [None]
